FAERS Safety Report 5912125-X (Version None)
Quarter: 2008Q4

REPORT INFORMATION
  Report Type: 
  Country: None (occurrence: None)
  Receive Date: 20081007
  Receipt Date: 20081007
  Transmission Date: 20090506
  Serious: No
  Sender: FDA-Public Use
  Company Number: None

PATIENT
  Age: 53 Year
  Sex: Female
  Weight: 64.8644 kg

DRUGS (1)
  1. METROGEL [Suspect]
     Indication: ROSACEA
     Dosage: TOPICAL
     Route: 061
     Dates: start: 20060101

REACTIONS (2)
  - ACNE [None]
  - RASH [None]
